FAERS Safety Report 13673522 (Version 1)
Quarter: 2017Q2

REPORT INFORMATION
  Report Type: Report from Study
  Country: JP (occurrence: JP)
  Receive Date: 20170621
  Receipt Date: 20170621
  Transmission Date: 20170830
  Serious: Yes (Other)
  Sender: FDA-Public Use
  Company Number: JP-TEVA-779254ROM

PATIENT
  Age: 74 Year
  Sex: Male
  Weight: 61.8 kg

DRUGS (3)
  1. EDOXABAN [Interacting]
     Active Substance: EDOXABAN TOSYLATE
     Indication: ANTICOAGULANT THERAPY
     Dosage: 15.0 MG/DAY
     Route: 048
  2. GIMERACIL, OTERACIL, TEGAFUR [Interacting]
     Active Substance: GIMERACIL\OTERACIL\TEGAFUR
     Indication: GASTRIC CANCER STAGE IV
     Dosage: 80.0 MG/M2
     Route: 065
  3. OXALIPLATIN. [Suspect]
     Active Substance: OXALIPLATIN
     Indication: GASTRIC CANCER STAGE IV
     Dosage: 100.0 MG/M2
     Route: 065

REACTIONS (2)
  - Ischaemic stroke [Recovered/Resolved]
  - Drug interaction [Recovered/Resolved]
